FAERS Safety Report 10056414 (Version 2)
Quarter: 2014Q2

REPORT INFORMATION
  Report Type: Spontaneous
  Country: US (occurrence: None)
  Receive Date: 20140401
  Receipt Date: 20140415
  Transmission Date: 20141212
  Serious: Yes (Hospitalization, Other)
  Sender: FDA-Public Use
  Company Number: 2014-US-003564

PATIENT
  Age: 30 Year
  Sex: Female
  Weight: 97.5 kg

DRUGS (4)
  1. XYREM [Suspect]
     Indication: NARCOLEPSY
     Route: 048
     Dates: start: 200504
  2. XYREM [Suspect]
     Indication: CATAPLEXY
     Route: 048
     Dates: start: 200504
  3. EFFEXOR (VENLAFAXINE HYDROCHLORIDE) UNKNOWN [Concomitant]
  4. PROVIGIL (MODAFINIL) [Concomitant]

REACTIONS (5)
  - Hepatic adenoma [None]
  - Narcolepsy [None]
  - Cataplexy [None]
  - Sleep paralysis [None]
  - Condition aggravated [None]
